FAERS Safety Report 8806272 (Version 2)
Quarter: 2013Q1

REPORT INFORMATION
  Report Type: Spontaneous
  Country: US (occurrence: US)
  Receive Date: 20120925
  Receipt Date: 20130205
  Transmission Date: 20140127
  Serious: No
  Sender: FDA-Public Use
  Company Number: US-009507513-1209USA000423

PATIENT
  Age: 57 Year
  Sex: Male
  Weight: 124.72 kg

DRUGS (1)
  1. PEGINTRON [Suspect]
     Indication: HEPATITIS C
     Dosage: UNK
     Route: 058
     Dates: start: 20120913

REACTIONS (4)
  - Wrong technique in drug usage process [Unknown]
  - Product quality issue [Unknown]
  - Needle issue [Unknown]
  - No adverse event [Unknown]
